FAERS Safety Report 10167018 (Version 1)
Quarter: 2014Q2

REPORT INFORMATION
  Report Type: Spontaneous
  Country: US (occurrence: None)
  Receive Date: 20140508
  Receipt Date: 20140508
  Transmission Date: 20141212
  Serious: Yes (Hospitalization)
  Sender: FDA-Public Use
  Company Number: 2014AP002730

PATIENT
  Age: 59 Year
  Sex: Male

DRUGS (4)
  1. AMLODIPINE BESYLATE [Suspect]
     Indication: INTENTIONAL OVERDOSE
     Dosage: 10MG, SINGLE ORAL
     Route: 048
  2. METFORMIN HYDROCHLORIDE [Suspect]
     Dosage: 500MG, SINGLE, ORAL
     Route: 048
  3. LISINOPRIL [Suspect]
     Route: 048
  4. SIMVASTATIN (SIMVASTATIN) [Suspect]
     Indication: INTENTIONAL OVERDOSE
     Dosage: 40MG, SINGLE, ORAL
     Route: 048

REACTIONS (5)
  - Cardiogenic shock [None]
  - Lactic acidosis [None]
  - Renal failure acute [None]
  - Intentional overdose [None]
  - Overdose [None]
